FAERS Safety Report 23035198 (Version 1)
Quarter: 2023Q4

REPORT INFORMATION
  Report Type: Spontaneous
  Country: US (occurrence: US)
  Receive Date: 20231005
  Receipt Date: 20231005
  Transmission Date: 20240110
  Serious: No
  Sender: FDA-Public Use
  Company Number: US-JNJFOC-20231003420

PATIENT
  Sex: Female

DRUGS (1)
  1. SPRAVATO [Suspect]
     Active Substance: ESKETAMINE
     Indication: Depression
     Route: 045

REACTIONS (5)
  - Throat irritation [Recovered/Resolved]
  - Anxiety [Recovered/Resolved]
  - Hypoaesthesia oral [Recovered/Resolved]
  - Dissociation [Recovered/Resolved]
  - Paraesthesia [Recovered/Resolved]
